FAERS Safety Report 5586041-X (Version None)
Quarter: 2007Q4

REPORT INFORMATION
  Report Type: 
  Country: None (occurrence: None)
  Receive Date: 20071205
  Receipt Date: 20070828
  Transmission Date: 20080405
  Serious: Yes (Other)
  Sender: FDA-Public Use
  Company Number: HQWYE896729AUG07

PATIENT
  Sex: Female

DRUGS (1)
  1. EFFEXOR XR [Suspect]
     Indication: DEPRESSION
     Dosage: 37.5 MG 1 X PER 1 DAY, ORAL
     Route: 048
     Dates: start: 20070811, end: 20070824

REACTIONS (1)
  - HYPERTENSION [None]
